FAERS Safety Report 14731313 (Version 1)
Quarter: 2018Q2

REPORT INFORMATION
  Report Type: Spontaneous
  Country: US (occurrence: US)
  Receive Date: 20180407
  Receipt Date: 20180407
  Transmission Date: 20180711
  Serious: Yes (Other)
  Sender: FDA-Public Use
  Company Number: US-ROCHE-2102548

PATIENT
  Sex: Male
  Weight: 94.89 kg

DRUGS (5)
  1. BENADRYL [Concomitant]
     Active Substance: DIPHENHYDRAMINE HYDROCHLORIDE
     Route: 048
  2. ALOXI [Concomitant]
     Active Substance: PALONOSETRON HYDROCHLORIDE
     Route: 042
  3. BENDEKA [Suspect]
     Active Substance: BENDAMUSTINE HYDROCHLORIDE
     Indication: NON-HODGKIN^S LYMPHOMA
     Route: 042
     Dates: start: 201711
  4. DECADRON [Concomitant]
     Active Substance: DEXAMETHASONE
     Route: 042
  5. RITUXAN [Suspect]
     Active Substance: RITUXIMAB
     Indication: NON-HODGKIN^S LYMPHOMA
     Route: 065

REACTIONS (10)
  - Loss of consciousness [Unknown]
  - Blood phosphorus increased [Unknown]
  - Gastrooesophageal reflux disease [Unknown]
  - Urticaria [Recovered/Resolved]
  - Thirst [Unknown]
  - Fluid imbalance [Unknown]
  - Dry skin [Unknown]
  - Hypotension [Unknown]
  - Rash [Recovered/Resolved]
  - Flushing [Unknown]
